FAERS Safety Report 17741326 (Version 2)
Quarter: 2020Q2

REPORT INFORMATION
  Report Type: Report from Study
  Country: US (occurrence: US)
  Receive Date: 20200504
  Receipt Date: 20200605
  Transmission Date: 20200714
  Serious: Yes (Other)
  Sender: FDA-Public Use
  Company Number: NVSC2020US109236

PATIENT
  Sex: Male

DRUGS (1)
  1. BEOVU [Suspect]
     Active Substance: BROLUCIZUMAB-DBLL
     Indication: AGE-RELATED MACULAR DEGENERATION
     Route: 047
     Dates: start: 20191125

REACTIONS (4)
  - Heart rate irregular [Unknown]
  - Atrial fibrillation [Unknown]
  - Product dose omission [Unknown]
  - Syncope [Unknown]
